FAERS Safety Report 9917078 (Version 4)
Quarter: 2014Q3

REPORT INFORMATION
  Report Type: Report from Study
  Country: US (occurrence: US)
  Receive Date: 20140221
  Receipt Date: 20140908
  Transmission Date: 20150326
  Serious: Yes (Other)
  Sender: FDA-Public Use
  Company Number: US-ACTELION-A-US2011-56386

PATIENT
  Age: 63 Year
  Sex: Female

DRUGS (2)
  1. TRACLEER [Suspect]
     Active Substance: BOSENTAN\BOSENTAN MONOHYDRATE
     Indication: PULMONARY ARTERIAL HYPERTENSION
     Dosage: UNK
     Route: 048
  2. TRACLEER [Suspect]
     Active Substance: BOSENTAN\BOSENTAN MONOHYDRATE
     Dosage: UNK
     Route: 048

REACTIONS (20)
  - Malaise [Unknown]
  - Raynaud^s phenomenon [Unknown]
  - Cough [Unknown]
  - Asthenia [Unknown]
  - Bone disorder [Unknown]
  - Pulmonary arterial hypertension [Unknown]
  - Dyspnoea exertional [Unknown]
  - Oedema peripheral [Unknown]
  - Fall [Unknown]
  - Dissociation [Unknown]
  - Condition aggravated [Unknown]
  - Exercise tolerance decreased [Unknown]
  - Fatigue [Unknown]
  - Oedema [Unknown]
  - Dizziness [Unknown]
  - Nocturnal dyspnoea [Unknown]
  - Systemic lupus erythematosus [Unknown]
  - Chest discomfort [Unknown]
  - Dyspnoea [Unknown]
  - Catheterisation cardiac [Unknown]

NARRATIVE: CASE EVENT DATE: 2011
